FAERS Safety Report 19598975 (Version 1)
Quarter: 2021Q3

REPORT INFORMATION
  Report Type: Spontaneous
  Country: US (occurrence: US)
  Receive Date: 20210723
  Receipt Date: 20210723
  Transmission Date: 20211014
  Serious: Yes (Other)
  Sender: FDA-Public Use
  Company Number: None

PATIENT
  Age: 70 Year
  Sex: Male
  Weight: 108 kg

DRUGS (9)
  1. OMEGA?3 ACIDS [Concomitant]
     Active Substance: OMEGA-3 FATTY ACIDS
  2. COENZYME Q10 [Concomitant]
     Active Substance: DIETARY SUPPLEMENT\UBIDECARENONE
  3. GLUCOSAMINE?CHONDROITIN [Concomitant]
     Active Substance: CHONDROITIN SULFATE (BOVINE)\GLUCOSAMINE SULFATE
  4. ZINC SULFATE. [Concomitant]
     Active Substance: ZINC SULFATE
  5. ATORVASTATIN 40 MG [Concomitant]
     Active Substance: ATORVASTATIN
  6. MULTIVITAMIN [Concomitant]
     Active Substance: VITAMINS
  7. REGEN?COV [Suspect]
     Active Substance: CASIRIVIMAB\IMDEVIMAB
     Indication: COVID-19
     Route: 042
     Dates: start: 20210722, end: 20210722
  8. LOSARTAN?HYDROCHLOROTHIAZIDE 50?12.5 MG [Concomitant]
  9. ASPIRIN 81 MG [Concomitant]
     Active Substance: ASPIRIN

REACTIONS (5)
  - Dizziness [None]
  - Hyperhidrosis [None]
  - Hypotension [None]
  - Heart rate decreased [None]
  - Nausea [None]

NARRATIVE: CASE EVENT DATE: 20210722
